FAERS Safety Report 4596604-6 (Version None)
Quarter: 2005Q1

REPORT INFORMATION
  Report Type: 
  Country: None (occurrence: None)
  Receive Date: 20050302
  Receipt Date: 20050224
  Transmission Date: 20050727
  Serious: Yes (Death)
  Sender: FDA-Public Use
  Company Number: PHBS2005JP02742

PATIENT

DRUGS (1)
  1. DESFERAL [Suspect]
     Route: 065

REACTIONS (1)
  - INTERSTITIAL LUNG DISEASE [None]
